FAERS Safety Report 24776746 (Version 2)
Quarter: 2025Q1

REPORT INFORMATION
  Report Type: Spontaneous
  Country: JP (occurrence: JP)
  Receive Date: 20241226
  Receipt Date: 20250227
  Transmission Date: 20250408
  Serious: Yes (Hospitalization)
  Sender: ACCORD
  Company Number: JP-MLMSERVICE-20241211-PI294857-00306-1

PATIENT
  Age: 4 Year
  Sex: Male
  Weight: 16 kg

DRUGS (3)
  1. TACROLIMUS [Suspect]
     Active Substance: TACROLIMUS
     Indication: Immunosuppressant drug therapy
  2. NITRIC OXIDE [Concomitant]
     Active Substance: NITRIC OXIDE
  3. NITRIC OXIDE [Concomitant]
     Active Substance: NITRIC OXIDE

REACTIONS (4)
  - Vasoconstriction [Recovered/Resolved]
  - Immunosuppressant drug level increased [Unknown]
  - Hypertension [Recovered/Resolved]
  - Oxygen saturation decreased [Recovered/Resolved]
